FAERS Safety Report 9986197 (Version 4)
Quarter: 2017Q4

REPORT INFORMATION
  Report Type: Report from Study
  Country: US (occurrence: US)
  Receive Date: 20140307
  Receipt Date: 20171219
  Transmission Date: 20180321
  Serious: Yes (Death, Other)
  Sender: FDA-Public Use
  Company Number: US-SANOFI-AVENTIS-2013SA065627

PATIENT
  Age: 78 Year
  Sex: Female

DRUGS (3)
  1. AUBAGIO [Suspect]
     Active Substance: TERIFLUNOMIDE
     Indication: MULTIPLE SCLEROSIS
     Route: 048
     Dates: start: 20130322, end: 20131230
  2. LEVOTHYROXINE. [Suspect]
     Active Substance: LEVOTHYROXINE
     Route: 065
  3. AUBAGIO [Suspect]
     Active Substance: TERIFLUNOMIDE
     Indication: MULTIPLE SCLEROSIS
     Route: 048

REACTIONS (4)
  - Alopecia [Not Recovered/Not Resolved]
  - Fall [Unknown]
  - Death [Fatal]
  - Drug dose omission [Unknown]
